FAERS Safety Report 6727834-2 (Version None)
Quarter: 2010Q2

REPORT INFORMATION
  Report Type: 
  Country: None (occurrence: None)
  Receive Date: 20100514
  Receipt Date: 20100514
  Transmission Date: 20101027
  Serious: Yes (Life-Threatening, Hospitalization)
  Sender: FDA-Public Use
  Company Number: None

PATIENT
  Sex: Male
  Weight: 96.7 kg

DRUGS (6)
  1. CITALOPRAM HYDROBROMIDE [Suspect]
     Indication: POST-TRAUMATIC STRESS DISORDER
     Dosage: 40 MG DAILY PO
     Route: 048
  2. LISINOPRIL [Concomitant]
  3. HCTZ [Concomitant]
  4. CLONIDINE [Concomitant]
  5. LANTUS [Concomitant]
  6. NOVOLOG [Concomitant]

REACTIONS (5)
  - CONVULSION [None]
  - HYPOTENSION [None]
  - NODAL RHYTHM [None]
  - SINUS BRADYCARDIA [None]
  - TORSADE DE POINTES [None]
